FAERS Safety Report 7866563-9 (Version None)
Quarter: 2011Q4

REPORT INFORMATION
  Report Type: 
  Country: None (occurrence: None)
  Receive Date: 20111028
  Receipt Date: 20110707
  Transmission Date: 20120403
  Serious: No
  Sender: FDA-Public Use
  Company Number: US-GLAXOSMITHKLINE-A0935334A

PATIENT
  Age: 47 Year
  Sex: Female

DRUGS (4)
  1. CITALOPRAM HYDROBROMIDE [Concomitant]
  2. VERAPAMIL [Concomitant]
  3. ADVAIR DISKUS 100/50 [Suspect]
     Indication: CHRONIC OBSTRUCTIVE PULMONARY DISEASE
     Route: 055
  4. HYDROCHLOROTHIAZIDE [Concomitant]

REACTIONS (4)
  - PRURITUS [None]
  - RASH [None]
  - DYSPHONIA [None]
  - OROPHARYNGEAL PAIN [None]
